FAERS Safety Report 7932794-2 (Version None)
Quarter: 2011Q4

REPORT INFORMATION
  Report Type: 
  Country: None (occurrence: None)
  Receive Date: 20111122
  Receipt Date: 20111114
  Transmission Date: 20120403
  Serious: Yes (Other)
  Sender: FDA-Public Use
  Company Number: US-BRISTOL-MYERS SQUIBB COMPANY-16229320

PATIENT
  Sex: Female

DRUGS (1)
  1. METFORMIN HCL [Suspect]
     Dosage: STARTED WITH 850MG TID DOSE RECUCED TO 1000MG BID

REACTIONS (3)
  - DIARRHOEA [None]
  - CARDIAC ARREST [None]
  - BLOOD MAGNESIUM DECREASED [None]
